FAERS Safety Report 11859668 (Version 11)
Quarter: 2017Q3

REPORT INFORMATION
  Report Type: Report from Study
  Country: US (occurrence: US)
  Receive Date: 20151221
  Receipt Date: 20170915
  Transmission Date: 20171127
  Serious: Yes (Hospitalization)
  Sender: FDA-Public Use
  Company Number: US-ACTELION-A-US2015-128805

PATIENT
  Age: 40 Year
  Sex: Female
  Weight: 99.77 kg

DRUGS (4)
  1. PREDNISONE. [Suspect]
     Active Substance: PREDNISONE
     Indication: PRODUCT USED FOR UNKNOWN INDICATION
     Route: 065
  2. COUMADIN [Concomitant]
     Active Substance: WARFARIN SODIUM
  3. ADEMPAS [Concomitant]
     Active Substance: RIOCIGUAT
  4. OPSUMIT [Suspect]
     Active Substance: MACITENTAN
     Indication: PULMONARY ARTERIAL HYPERTENSION
     Dosage: 10 MG, QD
     Route: 048
     Dates: start: 20140731

REACTIONS (20)
  - Pain [Unknown]
  - Peripheral swelling [Unknown]
  - International normalised ratio increased [Unknown]
  - Weight increased [Unknown]
  - Blood potassium decreased [Unknown]
  - Nausea [Unknown]
  - Fatigue [Unknown]
  - Palpitations [Unknown]
  - Dyspnoea [Unknown]
  - Fluid retention [Unknown]
  - Foot fracture [Unknown]
  - Syncope [Unknown]
  - Cardiac failure congestive [Unknown]
  - Presyncope [Unknown]
  - Agitation [Unknown]
  - Pneumonia [Unknown]
  - Malaise [Unknown]
  - Oral infection [Unknown]
  - Dizziness [Unknown]
  - Tooth extraction [Unknown]

NARRATIVE: CASE EVENT DATE: 201607
